FAERS Safety Report 15105863 (Version 1)
Quarter: 2018Q3

REPORT INFORMATION
  Report Type: Spontaneous
  Country: FR (occurrence: FR)
  Receive Date: 20180704
  Receipt Date: 20180704
  Transmission Date: 20181010
  Serious: Yes (Hospitalization)
  Sender: FDA-Public Use
  Company Number: FR-ACCORD-069120

PATIENT
  Age: 52 Year
  Sex: Female

DRUGS (10)
  1. FLUOROURACIL. [Suspect]
     Active Substance: FLUOROURACIL
     Indication: ANAL CANCER STAGE 0
     Route: 042
     Dates: start: 20170907, end: 20170907
  2. PREDNISONE. [Concomitant]
     Active Substance: PREDNISONE
  3. PARACETAMOL [Concomitant]
     Active Substance: ACETAMINOPHEN
  4. CISPLATIN. [Suspect]
     Active Substance: CISPLATIN
     Indication: ANAL CANCER STAGE 0
     Route: 042
     Dates: start: 20170907, end: 20170909
  5. HYDROXYCHLOROQUINE [Concomitant]
     Active Substance: HYDROXYCHLOROQUINE
  6. MYCOPHENOLIC ACID. [Concomitant]
     Active Substance: MYCOPHENOLIC ACID
  7. PRAZEPAM [Concomitant]
     Active Substance: PRAZEPAM
  8. CANDESARTAN. [Concomitant]
     Active Substance: CANDESARTAN
  9. ACETYLSALICYLIC ACID [Concomitant]
     Active Substance: ASPIRIN
  10. ATORVASTATIN [Concomitant]
     Active Substance: ATORVASTATIN

REACTIONS (5)
  - Vomiting [Recovered/Resolved]
  - Mucosal inflammation [Recovered/Resolved]
  - Pancytopenia [Not Recovered/Not Resolved]
  - Diarrhoea [Recovered/Resolved]
  - Sepsis [Recovered/Resolved]

NARRATIVE: CASE EVENT DATE: 20170907
